FAERS Safety Report 6970289-3 (Version None)
Quarter: 2010Q3

REPORT INFORMATION
  Report Type: 
  Country: None (occurrence: None)
  Receive Date: 20100908
  Receipt Date: 20100826
  Transmission Date: 20110219
  Serious: No
  Sender: FDA-Public Use
  Company Number: US-B.I. PHARMACEUTICALS,INC./RIDGEFIELD-2010-BP-07890BP

PATIENT
  Sex: Female

DRUGS (3)
  1. SPIRIVA [Suspect]
     Indication: EMPHYSEMA
     Dosage: 18 MCG
     Route: 055
     Dates: start: 20090101
  2. VENTOLIN [Concomitant]
     Indication: EMPHYSEMA
  3. SYMBICORT [Concomitant]
     Indication: EMPHYSEMA

REACTIONS (2)
  - ANXIETY [None]
  - DYSPNOEA [None]
